FAERS Safety Report 5854648-8 (Version None)
Quarter: 2008Q3

REPORT INFORMATION
  Report Type: 
  Country: None (occurrence: None)
  Receive Date: 20080822
  Receipt Date: 20071114
  Transmission Date: 20090109
  Serious: No
  Sender: FDA-Public Use
  Company Number: US-ABBOTT-07P-163-0425467-00

PATIENT
  Sex: Female
  Weight: 79.45 kg

DRUGS (6)
  1. SYNTHROID [Suspect]
     Indication: THYROIDECTOMY
     Route: 048
     Dates: start: 20020101
  2. SYNTHROID [Suspect]
     Indication: THYROID CANCER
  3. SYNTHROID [Suspect]
     Indication: THYROIDECTOMY
     Route: 048
     Dates: start: 20020101
  4. SYNTHROID [Suspect]
     Indication: THYROID CANCER
  5. ESOMEPRAZOLE MAGNESIUM [Concomitant]
     Indication: HIATUS HERNIA
     Route: 048
  6. DYAZIDE [Concomitant]
     Indication: DIURETIC THERAPY
     Route: 048

REACTIONS (2)
  - ABDOMINAL DISTENSION [None]
  - WEIGHT INCREASED [None]
